FAERS Safety Report 6719491-6 (Version None)
Quarter: 2010Q2

REPORT INFORMATION
  Report Type: 
  Country: None (occurrence: None)
  Receive Date: 20100511
  Receipt Date: 20100426
  Transmission Date: 20101027
  Serious: Yes (Death, Hospitalization, Other)
  Sender: FDA-Public Use
  Company Number: DE-ROCHE-699429

PATIENT
  Age: 47 Year
  Sex: Male

DRUGS (16)
  1. ROFERON-A [Suspect]
     Indication: ANTIVIRAL TREATMENT
     Dosage: ON DAY 53
     Route: 065
  2. ROFERON-A [Suspect]
     Dosage: STARTED FROM DAY 56
     Route: 065
  3. MIDAZOLAM HCL [Suspect]
     Indication: SEDATION
     Dosage: STARTING DAY 47
     Route: 065
  4. RIBAVIRIN [Suspect]
     Indication: ANTIVIRAL TREATMENT
     Dosage: OVER THREE DAYS
     Route: 065
  5. RIBAVIRIN [Suspect]
     Route: 065
  6. RIBAVIRIN [Suspect]
     Dosage: ON DAY 52-58; FORM: INTRATHECALLY
     Route: 065
  7. RIBAVIRIN [Suspect]
     Dosage: ON DAY 63, 65, 67, 70 AND 77
     Route: 065
  8. MYCOPHENOLATE MOFETIL [Suspect]
     Indication: PROPHYLAXIS AGAINST TRANSPLANT REJECTION
     Route: 065
  9. ANTI-THYMOCYTE GLOBULIN NOS [Suspect]
     Indication: PROPHYLAXIS AGAINST TRANSPLANT REJECTION
     Dosage: ADMINISTERED IN FOUR DOSES.
     Route: 065
  10. CYCLOSPORINE [Suspect]
     Indication: PROPHYLAXIS AGAINST TRANSPLANT REJECTION
     Dosage: REDUCED OVER 4 DAYS
     Route: 065
  11. PHENOBARBITAL [Suspect]
     Indication: SEDATION
     Route: 065
  12. AMANTADINE HCL [Suspect]
     Indication: ANTIVIRAL TREATMENT
     Dosage: ADDED ON DAY 53
     Route: 065
  13. KETAMINE [Suspect]
     Indication: SEDATION
     Route: 065
  14. PREDNISOLONE [Suspect]
     Indication: PROPHYLAXIS AGAINST TRANSPLANT REJECTION
     Route: 065
  15. INTERFERON ALFA (NON-ROCHE) [Suspect]
     Indication: ANTIVIRAL TREATMENT
     Dosage: ON DAY 46; TRADE NAME REPORTED AS PEGASYS
     Route: 058
  16. INTERFERON ALFA (NON-ROCHE) [Suspect]
     Dosage: ADMINISTERED INTRATHECALLY AT 1.5X10E6 IU ON DAY 54 AND 65
     Route: 058

REACTIONS (12)
  - ARRHYTHMIA [None]
  - BRAIN DEATH [None]
  - BRAIN OEDEMA [None]
  - CARDIAC ARREST [None]
  - DIABETES INSIPIDUS [None]
  - HEPATIC ENZYME INCREASED [None]
  - HYDROPHOBIA [None]
  - HYPOTHERMIA [None]
  - PANIC ATTACK [None]
  - RESPIRATORY DISTRESS [None]
  - SALIVARY HYPERSECRETION [None]
  - SEDATION [None]
